FAERS Safety Report 7827677-2 (Version None)
Quarter: 2011Q4

REPORT INFORMATION
  Report Type: 
  Country: None (occurrence: None)
  Receive Date: 20111020
  Receipt Date: 20111017
  Transmission Date: 20120403
  Serious: Yes (Life-Threatening, Hospitalization)
  Sender: FDA-Public Use
  Company Number: PHHY2011JP88298

PATIENT
  Age: 13 Year
  Sex: Male

DRUGS (12)
  1. FLUCONAZOLE [Concomitant]
  2. IMIPENEM [Concomitant]
  3. VORICONAZOLE [Concomitant]
  4. LIPOSOMAL AMPHOTERICIN B [Concomitant]
  5. VORICONAZOLE [Concomitant]
  6. METHYLPHENIDATE HCL [Concomitant]
     Indication: HYPERKINESIA
     Dosage: UNK UKN, UNK
     Route: 048
  7. AZATHIOPRINE [Concomitant]
  8. MINOCYCLINE HCL [Concomitant]
  9. IMATINIB MESYLATE [Suspect]
     Indication: ACUTE LYMPHOCYTIC LEUKAEMIA
     Dosage: UNK
     Route: 048
  10. FLOMOXEF [Concomitant]
  11. CYCLOSERINE [Concomitant]
  12. ARBEKACIN [Concomitant]

REACTIONS (2)
  - CARDIO-RESPIRATORY ARREST [None]
  - PANCREATITIS ACUTE [None]
